FAERS Safety Report 6495366-5 (Version None)
Quarter: 2009Q4

REPORT INFORMATION
  Report Type: 
  Country: None (occurrence: None)
  Receive Date: 20091214
  Receipt Date: 20090613
  Transmission Date: 20100525
  Serious: No
  Sender: FDA-Public Use
  Company Number: US-BRISTOL-MYERS SQUIBB COMPANY-14657944

PATIENT
  Age: 64 Year
  Sex: Male

DRUGS (4)
  1. ABILIFY [Suspect]
     Indication: MOOD SWINGS
     Dosage: STARTING DOSE 2 MG, DOSE DECREASED TO 5MG ON 04JUN09
     Route: 048
     Dates: start: 20090324, end: 20090605
  2. ABILIFY [Suspect]
     Indication: BIPOLAR DISORDER
     Dosage: STARTING DOSE 2 MG, DOSE DECREASED TO 5MG ON 04JUN09
     Route: 048
     Dates: start: 20090324, end: 20090605
  3. CYMBALTA [Concomitant]
  4. TRILEPTAL [Concomitant]

REACTIONS (3)
  - ABNORMAL SLEEP-RELATED EVENT [None]
  - DISTURBANCE IN ATTENTION [None]
  - SOMNAMBULISM [None]
